FAERS Safety Report 7078368-X (Version None)
Quarter: 2010Q4

REPORT INFORMATION
  Report Type: 
  Country: None (occurrence: None)
  Receive Date: 20101102
  Receipt Date: 20101027
  Transmission Date: 20110411
  Serious: Yes (Other)
  Sender: FDA-Public Use
  Company Number: CA-BAYER-201036150NA

PATIENT
  Age: 57 Year
  Sex: Female

DRUGS (4)
  1. BETASERON [Suspect]
     Indication: PRODUCT USED FOR UNKNOWN INDICATION
     Dosage: TOTAL DAILY DOSE: 8 MIU
     Route: 058
     Dates: start: 20100630
  2. ESTROGEN [Concomitant]
     Indication: PRODUCT USED FOR UNKNOWN INDICATION
  3. ACETAMINOPHEN [Concomitant]
     Indication: DISCOMFORT
  4. APO-CLONAZEPAM [Concomitant]
     Indication: ANXIETY

REACTIONS (3)
  - ASTHENIA [None]
  - DIZZINESS [None]
  - SYNCOPE [None]
